FAERS Safety Report 7534407-0 (Version None)
Quarter: 2011Q2

REPORT INFORMATION
  Report Type: 
  Country: None (occurrence: None)
  Receive Date: 20110608
  Receipt Date: 20110524
  Transmission Date: 20111010
  Serious: No
  Sender: FDA-Public Use
  Company Number: US-AMGEN-USASP2011024992

PATIENT
  Age: 62 Year
  Sex: Female

DRUGS (3)
  1. VITAMIN A [Concomitant]
  2. PROLIA [Suspect]
     Indication: OSTEOPOROSIS POSTMENOPAUSAL
     Dosage: 60 MG, Q6MO
     Route: 058
     Dates: start: 20110513, end: 20110513
  3. CALCIUM CARBONATE [Concomitant]

REACTIONS (1)
  - PRURITUS [None]
